FAERS Safety Report 16619538 (Version 1)
Quarter: 2019Q3

REPORT INFORMATION
  Report Type: Spontaneous
  Country: US (occurrence: US)
  Receive Date: 20190723
  Receipt Date: 20190723
  Transmission Date: 20191004
  Serious: No
  Sender: FDA-Public Use
  Company Number: US-009507513-1711USA003426

PATIENT
  Sex: Female
  Weight: 102.33 kg

DRUGS (10)
  1. NORTRIPTYLINE [Suspect]
     Active Substance: NORTRIPTYLINE
     Indication: SLEEP DISORDER
     Dosage: UNK
  2. NORTRIPTYLINE [Suspect]
     Active Substance: NORTRIPTYLINE
     Indication: FIBROMYALGIA
  3. XANAX [Suspect]
     Active Substance: ALPRAZOLAM
     Indication: DEPRESSION
     Dosage: UNK
     Route: 048
  4. NORTRIPTYLINE [Suspect]
     Active Substance: NORTRIPTYLINE
     Indication: CYSTITIS INTERSTITIAL
  5. STERILE DILUENT (WATER) [Suspect]
     Active Substance: WATER
     Indication: PROPHYLAXIS
     Dosage: UNK
     Route: 065
     Dates: start: 20140226
  6. OXYBUTYNIN. [Suspect]
     Active Substance: OXYBUTYNIN CHLORIDE
     Dosage: UNK
  7. LASIX [Suspect]
     Active Substance: FUROSEMIDE
     Indication: OEDEMA PERIPHERAL
     Dosage: ONE TO HALF TABLET AS NEEDED
     Route: 048
  8. ZOSTAVAX [Suspect]
     Active Substance: VARICELLA-ZOSTER VIRUS STRAIN OKA/MERCK LIVE ANTIGEN
     Indication: PROPHYLAXIS
     Dosage: .65 MILLILITER
     Route: 065
     Dates: start: 20140226, end: 20140226
  9. METHADONE HYDROCHLORIDE. [Suspect]
     Active Substance: METHADONE HYDROCHLORIDE
     Indication: BACK PAIN
     Dosage: UNK
  10. XANAX [Suspect]
     Active Substance: ALPRAZOLAM
     Indication: ANXIETY

REACTIONS (23)
  - Immune system disorder [Unknown]
  - Weight increased [Recovering/Resolving]
  - Blood potassium decreased [Unknown]
  - Anxiety [Unknown]
  - Neuralgia [Unknown]
  - Somnolence [Unknown]
  - Depression [Unknown]
  - Sleep disorder [Unknown]
  - Vaccination failure [Unknown]
  - Cystitis interstitial [Unknown]
  - Hyperlipidaemia [Unknown]
  - Hypothyroidism [Recovered/Resolved]
  - Endometrial hyperplasia [Unknown]
  - Oedema peripheral [Recovered/Resolved]
  - Urinary incontinence [Unknown]
  - Fibromyalgia [Unknown]
  - Hypomagnesaemia [Unknown]
  - Hypertension [Unknown]
  - Back pain [Unknown]
  - Blood chloride decreased [Unknown]
  - Carbon dioxide increased [Unknown]
  - Herpes zoster [Recovering/Resolving]
  - Uterine leiomyoma [Unknown]

NARRATIVE: CASE EVENT DATE: 2015
